FAERS Safety Report 6323962-4 (Version None)
Quarter: 2009Q3

REPORT INFORMATION
  Report Type: 
  Country: None (occurrence: None)
  Receive Date: 20090824
  Receipt Date: 20090817
  Transmission Date: 20100115
  Serious: Yes (Hospitalization)
  Sender: FDA-Public Use
  Company Number: A0803372A

PATIENT
  Age: 54 Year
  Sex: Female
  Weight: 64.4 kg

DRUGS (7)
  1. LAPATINIB [Suspect]
     Indication: BREAST CANCER
     Dosage: 1250MG PER DAY
     Route: 048
     Dates: start: 20090813
  2. TAXOTERE [Suspect]
     Indication: BREAST CANCER
     Dosage: 100MGM2 EVERY 3 WEEKS
     Route: 042
     Dates: start: 20090813
  3. ACYCLOVIR [Concomitant]
     Dosage: 400MG TWICE PER DAY
     Route: 048
  4. EPIVIR [Concomitant]
     Dosage: 100MG PER DAY
     Route: 048
  5. ZANTAC [Concomitant]
     Dosage: 150MG TWICE PER DAY
     Route: 048
  6. LORAZEPAM [Concomitant]
     Indication: ANXIETY
     Dosage: 1MG AS REQUIRED
     Route: 048
  7. NEULASTA [Concomitant]
     Dates: start: 20090814, end: 20090814

REACTIONS (5)
  - BACK PAIN [None]
  - DIARRHOEA [None]
  - DYSPHAGIA [None]
  - FATIGUE [None]
  - MUCOSAL INFLAMMATION [None]
